FAERS Safety Report 7996425-8 (Version None)
Quarter: 2011Q4

REPORT INFORMATION
  Report Type: 
  Country: None (occurrence: None)
  Receive Date: 20111220
  Receipt Date: 20060921
  Transmission Date: 20120403
  Serious: Yes (Other)
  Sender: FDA-Public Use
  Company Number: DE-SANTEN INC.-INC-11-000222

PATIENT
  Age: 19 Year
  Sex: Female

DRUGS (1)
  1. LEVOFLOXACIN [Suspect]
     Route: 047
     Dates: start: 20060818, end: 20060818

REACTIONS (7)
  - URTICARIA [None]
  - BLOOD PRESSURE DECREASED [None]
  - NAUSEA [None]
  - ORAL DISORDER [None]
  - HYPERSENSITIVITY [None]
  - GENERALISED ERYTHEMA [None]
  - TACHYCARDIA [None]
